FAERS Safety Report 13998127 (Version 4)
Quarter: 2017Q4

REPORT INFORMATION
  Report Type: Spontaneous
  Country: US (occurrence: US)
  Receive Date: 20170921
  Receipt Date: 20171129
  Transmission Date: 20180321
  Serious: Yes (Death, Hospitalization)
  Sender: FDA-Public Use
  Company Number: US-ACTELION-A-NJ2017-159583

PATIENT
  Age: 72 Year
  Sex: Female
  Weight: 43.54 kg

DRUGS (3)
  1. ADCIRCA [Concomitant]
     Active Substance: TADALAFIL
  2. REMODULIN [Concomitant]
     Active Substance: TREPROSTINIL
  3. OPSUMIT [Suspect]
     Active Substance: MACITENTAN
     Indication: PULMONARY HYPERTENSION
     Dosage: 10 MG, QD
     Route: 048

REACTIONS (8)
  - Pneumonia [Unknown]
  - Abdominal pain [Unknown]
  - Catheter site infection [Unknown]
  - Dyspnoea [Unknown]
  - Fluid retention [Unknown]
  - Catheter site erythema [Unknown]
  - Death [Fatal]
  - Fluid overload [Unknown]

NARRATIVE: CASE EVENT DATE: 20171116
